FAERS Safety Report 14773689 (Version 2)
Quarter: 2018Q2

REPORT INFORMATION
  Report Type: Spontaneous
  Country: DE (occurrence: DE)
  Receive Date: 20180418
  Receipt Date: 20180425
  Transmission Date: 20180711
  Serious: Yes (Hospitalization, Other)
  Sender: FDA-Public Use
  Company Number: PHHY2012DE143925

PATIENT
  Age: 47 Year
  Sex: Female

DRUGS (4)
  1. MTX SANDOZ [Suspect]
     Active Substance: METHOTREXATE SODIUM
     Indication: PRODUCT USED FOR UNKNOWN INDICATION
     Dosage: 7.5 MG, UNK
     Route: 048
  2. LEFLUNOMIDE. [Concomitant]
     Active Substance: LEFLUNOMIDE
     Indication: RHEUMATOID ARTHRITIS
     Route: 065
  3. HUMIRA [Suspect]
     Active Substance: ADALIMUMAB
     Indication: PRODUCT USED FOR UNKNOWN INDICATION
     Dosage: 40 MG, Q2W
     Route: 058
     Dates: start: 201110, end: 201202
  4. PREDNISOLON [Concomitant]
     Active Substance: PREDNISOLONE
     Indication: PRODUCT USED FOR UNKNOWN INDICATION
     Dosage: 5 MG, QD
     Route: 065

REACTIONS (11)
  - Hypercalcaemia [Unknown]
  - Normochromic normocytic anaemia [Unknown]
  - Nephrolithiasis [Unknown]
  - Pyrexia [Recovering/Resolving]
  - Hypotension [Unknown]
  - Renal failure [Unknown]
  - Dysphagia [Unknown]
  - Pain [Unknown]
  - Leukopenia [Unknown]
  - Fatigue [Unknown]
  - Oral discomfort [Unknown]

NARRATIVE: CASE EVENT DATE: 201203
